FAERS Safety Report 11593174 (Version 1)
Quarter: 2015Q4

REPORT INFORMATION
  Report Type: Spontaneous
  Country: US (occurrence: US)
  Receive Date: 20151005
  Receipt Date: 20151005
  Transmission Date: 20160304
  Serious: No
  Sender: FDA-Public Use
  Company Number: US-JNJFOC-20150920657

PATIENT
  Age: 32 Year
  Sex: Male
  Weight: 96.62 kg

DRUGS (4)
  1. SANDOZ FENTANYL MATRIX TRANSDERMAL SYSTEM [Suspect]
     Active Substance: FENTANYL
     Indication: BACK PAIN
     Route: 062
     Dates: start: 201509
  2. SANDOZ FENTANYL MATRIX TRANSDERMAL SYSTEM [Suspect]
     Active Substance: FENTANYL
     Indication: PAIN IN EXTREMITY
     Route: 062
     Dates: start: 201509
  3. LIDOCAINE 5% [Concomitant]
     Active Substance: LIDOCAINE
     Indication: PAIN
     Route: 065
     Dates: start: 201507
  4. OPANA [Concomitant]
     Active Substance: OXYMORPHONE HYDROCHLORIDE
     Indication: PAIN
     Route: 048

REACTIONS (6)
  - Pain [Not Recovered/Not Resolved]
  - Product quality issue [Unknown]
  - Wrong technique in product usage process [Unknown]
  - Application site pain [Recovered/Resolved]
  - Application site pruritus [Unknown]
  - Drug ineffective [Not Recovered/Not Resolved]

NARRATIVE: CASE EVENT DATE: 201509
